FAERS Safety Report 9587402 (Version 4)
Quarter: 2014Q1

REPORT INFORMATION
  Report Type: Report from Study
  Country: US (occurrence: US)
  Receive Date: 20131003
  Receipt Date: 20140319
  Transmission Date: 20141002
  Serious: Yes (Hospitalization, Other)
  Sender: FDA-Public Use
  Company Number: US-BRISTOL-MYERS SQUIBB COMPANY-19466432

PATIENT
  Age: 56 Year
  Sex: Male

DRUGS (6)
  1. ARIPIPRAZOLE [Suspect]
     Indication: BIPOLAR I DISORDER
     Dosage: REG 2: 20AUG2013 TO 10SEP2013?11SP13-UNK ORAL ALSO TKN
     Route: 048
     Dates: start: 20130820
  2. DEPAKOTE [Concomitant]
     Dosage: CONTINUING.
     Dates: start: 20130911
  3. WELLBUTRIN [Concomitant]
     Dosage: CONTINUING.
     Dates: start: 20130912
  4. COGENTIN [Concomitant]
     Dosage: CONTINUING.
     Dates: start: 20130912
  5. ATIVAN [Concomitant]
     Dosage: CONTINUING.
     Dates: start: 201307
  6. PRAZOSIN HCL [Concomitant]
     Dosage: CONTINUING.
     Dates: start: 201301

REACTIONS (2)
  - Mental status changes [Recovered/Resolved]
  - Reactive psychosis [Recovered/Resolved]
